FAERS Safety Report 25363922 (Version 1)
Quarter: 2025Q2

REPORT INFORMATION
  Report Type: Spontaneous
  Country: CN (occurrence: CN)
  Receive Date: 20250527
  Receipt Date: 20250527
  Transmission Date: 20250717
  Serious: Yes (Hospitalization)
  Sender: BAYER HEALTHCARE PHARMACEUTICALS INC.
  Company Number: CN-BAYER-2025A070663

PATIENT
  Age: 59 Year
  Sex: Male

DRUGS (5)
  1. GLUCOBAY [Suspect]
     Active Substance: ACARBOSE
     Indication: Diabetes mellitus inadequate control
     Dosage: 25 MG, TID
     Route: 048
  2. METFORMIN HYDROCHLORIDE [Suspect]
     Active Substance: METFORMIN HYDROCHLORIDE
     Indication: Diabetes mellitus inadequate control
     Dosage: 0.5 G, BID
     Route: 048
  3. ROSUVASTATIN CALCIUM [Suspect]
     Active Substance: ROSUVASTATIN CALCIUM
     Indication: Arteriosclerosis coronary artery
     Dosage: 10 MG, HS
     Route: 048
  4. ROSUVASTATIN CALCIUM [Suspect]
     Active Substance: ROSUVASTATIN CALCIUM
     Indication: Lipids abnormal
  5. DAPAGLIFLOZIN [Suspect]
     Active Substance: DAPAGLIFLOZIN
     Indication: Diabetes mellitus inadequate control
     Dosage: 5 MG, QD
     Route: 048

REACTIONS (4)
  - Chest discomfort [None]
  - Nausea [None]
  - Vomiting [None]
  - Hepatic function abnormal [Recovered/Resolved]

NARRATIVE: CASE EVENT DATE: 20250509
